FAERS Safety Report 7284682-5 (Version None)
Quarter: 2011Q1

REPORT INFORMATION
  Report Type: 
  Country: None (occurrence: None)
  Receive Date: 20110210
  Receipt Date: 20110127
  Transmission Date: 20110831
  Serious: No
  Sender: FDA-Public Use
  Company Number: US-BIOGENIDEC-2011BI004076

PATIENT
  Age: 49 Year
  Sex: Male

DRUGS (2)
  1. TYSABRI [Suspect]
     Indication: MULTIPLE SCLEROSIS
     Route: 042
     Dates: start: 20100325, end: 20101202
  2. TYSABRI [Suspect]
     Route: 042
     Dates: start: 20070830, end: 20091203

REACTIONS (4)
  - INFLUENZA [None]
  - ABASIA [None]
  - DEHYDRATION [None]
  - DIARRHOEA [None]
